FAERS Safety Report 8029084-9 (Version None)
Quarter: 2012Q1

REPORT INFORMATION
  Report Type: 
  Country: None (occurrence: None)
  Receive Date: 20120106
  Receipt Date: 20120103
  Transmission Date: 20120608
  Serious: Yes (Other)
  Sender: FDA-Public Use
  Company Number: BR-PFIZER INC-2012000986

PATIENT
  Age: 33 Year
  Sex: Female
  Weight: 83 kg

DRUGS (3)
  1. IODINE [Concomitant]
     Indication: HYPOTHYROIDISM
     Dosage: UNK
     Dates: start: 20110701
  2. YASMIN [Concomitant]
     Indication: CONTRACEPTION
     Dosage: UNK
  3. IBUPROFEN (ADVIL) [Suspect]
     Indication: NASOPHARYNGITIS
     Dosage: 400 MG (UNSPECIFIED FREQUENCY)
     Route: 048

REACTIONS (6)
  - MOUTH HAEMORRHAGE [None]
  - MOUTH INJURY [None]
  - EATING DISORDER [None]
  - ORAL PAIN [None]
  - ORAL DISCOMFORT [None]
  - BURNING SENSATION [None]
